FAERS Safety Report 4885436-7 (Version None)
Quarter: 2006Q1

REPORT INFORMATION
  Report Type: 
  Country: None (occurrence: None)
  Receive Date: 20060119
  Receipt Date: 20051128
  Transmission Date: 20060701
  Serious: Yes (Death)
  Sender: FDA-Public Use
  Company Number: CA-ABBOTT-05P-028-0318312-00

PATIENT
  Sex: Female
  Weight: 61.29 kg

DRUGS (8)
  1. HUMIRA [Suspect]
     Indication: RHEUMATOID ARTHRITIS
     Route: 058
     Dates: start: 20040427
  2. CALCIUM CARBONATE [Concomitant]
     Indication: DRUG USE FOR UNKNOWN INDICATION
  3. ALENDRONATE SODIUM [Concomitant]
     Indication: DRUG USE FOR UNKNOWN INDICATION
  4. MULTIVIT [Concomitant]
     Indication: DRUG USE FOR UNKNOWN INDICATION
  5. RABEPRAZOLE SODIUM [Concomitant]
     Indication: DRUG USE FOR UNKNOWN INDICATION
  6. APO-KETO-E KETOPROFEN [Concomitant]
     Indication: DRUG USE FOR UNKNOWN INDICATION
  7. RALOXIFENE HYDROCHLORIDE [Concomitant]
     Indication: DRUG USE FOR UNKNOWN INDICATION
  8. FOLIC ACID [Concomitant]
     Indication: DRUG USE FOR UNKNOWN INDICATION

REACTIONS (17)
  - ABDOMINAL PAIN UPPER [None]
  - AMMONIA INCREASED [None]
  - ANAEMIA [None]
  - BLOOD ALBUMIN DECREASED [None]
  - BREAST NEOPLASM [None]
  - DEPRESSED LEVEL OF CONSCIOUSNESS [None]
  - FATIGUE [None]
  - HEPATIC CANCER METASTATIC [None]
  - HEPATIC ENZYME INCREASED [None]
  - HEPATIC FAILURE [None]
  - INTERNATIONAL NORMALISED RATIO INCREASED [None]
  - LYMPHADENOPATHY [None]
  - NAUSEA [None]
  - OEDEMA [None]
  - ORAL INTAKE REDUCED [None]
  - RENAL IMPAIRMENT [None]
  - VOMITING [None]
